FAERS Safety Report 19197063 (Version 5)
Quarter: 2021Q4

REPORT INFORMATION
  Report Type: Other
  Country: CN (occurrence: None)
  Receive Date: 20210430
  Receipt Date: 20211118
  Transmission Date: 20220303
  Serious: Yes (Other)
  Sender: FDA-Public Use
  Company Number: CN-ROCHE-1646022

PATIENT
  Age: 54 Year
  Sex: Male
  Weight: 71 kg

DRUGS (3)
  1. AVASTIN [Suspect]
     Active Substance: BEVACIZUMAB
     Indication: Colon cancer
     Route: 041
     Dates: start: 20140707
  2. AVASTIN [Suspect]
     Active Substance: BEVACIZUMAB
     Indication: Metastases to liver
     Route: 041
     Dates: start: 20171128, end: 20210105
  3. AVASTIN [Suspect]
     Active Substance: BEVACIZUMAB
     Indication: Metastases to lung

REACTIONS (11)
  - Pulmonary tuberculosis [Unknown]
  - Hypoacusis [Unknown]
  - Malaise [Unknown]
  - Marasmus [Unknown]
  - Memory impairment [Unknown]
  - Asthenia [Unknown]
  - Asthma [Unknown]
  - Haemorrhoids [Recovering/Resolving]
  - Fall [Unknown]
  - Injury [Unknown]
  - Pneumonitis [Recovering/Resolving]

NARRATIVE: CASE EVENT DATE: 20210101
